FAERS Safety Report 8044333-9 (Version None)
Quarter: 2012Q1

REPORT INFORMATION
  Report Type: 
  Country: None (occurrence: None)
  Receive Date: 20120113
  Receipt Date: 20120103
  Transmission Date: 20120608
  Serious: Yes (Other)
  Sender: FDA-Public Use
  Company Number: US-BAYER-201010482NA

PATIENT
  Sex: Female

DRUGS (12)
  1. YAZ [Suspect]
     Dosage: UNK
     Route: 064
     Dates: end: 20060201
  2. YASMIN [Suspect]
     Dosage: UNK
     Route: 064
     Dates: end: 20060201
  3. YASMIN [Suspect]
     Dosage: UNK
     Dates: start: 20070601, end: 20090401
  4. YASMIN [Suspect]
     Dosage: UNK
     Dates: start: 20070601, end: 20090401
  5. HEPARIN [Concomitant]
     Route: 064
  6. LOVENOX [Concomitant]
     Route: 064
  7. YAZ [Suspect]
     Dosage: UNK
     Dates: start: 20070601, end: 20090401
  8. YAZ [Suspect]
     Dosage: UNK
     Dates: start: 20070601, end: 20090401
  9. YASMIN [Suspect]
     Dosage: UNK
     Route: 064
     Dates: end: 20060201
  10. HEPARIN [Concomitant]
     Route: 064
  11. YAZ [Suspect]
     Dosage: UNK
     Route: 064
     Dates: end: 20060201
  12. LOVENOX [Concomitant]
     Route: 064

REACTIONS (3)
  - CONGENITAL ANOMALY [None]
  - HYPOPLASTIC LEFT HEART SYNDROME [None]
  - INJURY [None]
